FAERS Safety Report 23124582 (Version 1)
Quarter: 2023Q4

REPORT INFORMATION
  Report Type: Spontaneous
  Country: US (occurrence: None)
  Receive Date: 20231029
  Receipt Date: 20231029
  Transmission Date: 20240110
  Serious: Yes (Disabling)
  Sender: FDA-Public Use
  Company Number: None

PATIENT
  Age: 39 Year
  Sex: Male
  Weight: 72.9 kg

DRUGS (9)
  1. MONTELUKAST [Suspect]
     Active Substance: MONTELUKAST SODIUM
     Indication: Multiple allergies
     Dates: start: 20200410, end: 20210410
  2. ANTIHISTAMINES NOS [Concomitant]
     Active Substance: ANTIHISTAMINES NOS
  3. CLARITIN-D NOS [Concomitant]
     Active Substance: LORATADINE\PSEUDOEPHEDRINE SULFATE
  4. Fluriconase [Concomitant]
  5. MELATONIN [Concomitant]
     Active Substance: MELATONIN
  6. 5 HTP [Concomitant]
  7. herbal mood boosters [Concomitant]
  8. MENTHOL [Concomitant]
     Active Substance: MENTHOL
  9. HERBALS [Concomitant]
     Active Substance: HERBALS

REACTIONS (8)
  - Emotional disorder [None]
  - Insomnia [None]
  - Irritability [None]
  - Pruritus [None]
  - Brain fog [None]
  - Sinonasal obstruction [None]
  - Dyspnoea [None]
  - Anxiety [None]

NARRATIVE: CASE EVENT DATE: 20200410
